FAERS Safety Report 18251220 (Version 2)
Quarter: 2021Q1

REPORT INFORMATION
  Report Type: Spontaneous
  Country: AR (occurrence: AR)
  Receive Date: 20200910
  Receipt Date: 20210222
  Transmission Date: 20210419
  Serious: Yes (Other)
  Sender: FDA-Public Use
  Company Number: AR-PFIZER INC-2020349303

PATIENT
  Age: 78 Year
  Sex: Male

DRUGS (2)
  1. SUTENT [Suspect]
     Active Substance: SUNITINIB MALATE
     Dosage: 50 MG, DAILY, TOOK 7 DAYS AND REST 7 DAYS
  2. SUTENT [Suspect]
     Active Substance: SUNITINIB MALATE
     Indication: METASTATIC RENAL CELL CARCINOMA
     Dosage: UNSPECIFIED DOSE, DAILY
     Dates: start: 20191025

REACTIONS (7)
  - Deafness [Not Recovered/Not Resolved]
  - Cataract [Recovered/Resolved]
  - Blindness [Recovered/Resolved]
  - Dizziness [Unknown]
  - Nodule [Unknown]
  - Wound complication [Unknown]
  - Decubitus ulcer [Unknown]

NARRATIVE: CASE EVENT DATE: 2020
